FAERS Safety Report 5846781-1 (Version None)
Quarter: 2008Q3

REPORT INFORMATION
  Report Type: 
  Country: None (occurrence: None)
  Receive Date: 20080815
  Receipt Date: 20080808
  Transmission Date: 20090109
  Serious: Yes (Hospitalization)
  Sender: FDA-Public Use
  Company Number: US-MERCK-0808USA02002

PATIENT
  Age: 84 Year
  Sex: Male

DRUGS (4)
  1. ZOCOR [Suspect]
     Route: 048
  2. CARVEDILOL [Suspect]
     Route: 048
  3. DONEPEZIL HYDROCHLORIDE [Concomitant]
     Route: 065
  4. PRINIVIL [Concomitant]
     Route: 065

REACTIONS (5)
  - AV DISSOCIATION [None]
  - BRADYCARDIA [None]
  - HYPOTENSION [None]
  - OVERDOSE [None]
  - PALLOR [None]
